FAERS Safety Report 9425942 (Version 2)
Quarter: 2013Q3

REPORT INFORMATION
  Report Type: Report from Study
  Country: BR (occurrence: BR)
  Receive Date: 20130729
  Receipt Date: 20130915
  Transmission Date: 20140515
  Serious: Yes (Other)
  Sender: FDA-Public Use
  Company Number: BR-US-EMD SERONO, INC.-7207912

PATIENT
  Age: 37 Year
  Sex: Female

DRUGS (9)
  1. REBIF [Suspect]
     Indication: MULTIPLE SCLEROSIS
     Dates: start: 20121128
  2. TOPIRAMATE [Suspect]
     Indication: MIGRAINE
  3. TOPIRAMATE [Suspect]
  4. TOPIRAMATE [Suspect]
  5. DOMPERIDONE [Concomitant]
     Indication: MIGRAINE
  6. NARAMIG [Concomitant]
     Indication: MIGRAINE
  7. KETOROLAC TROMETHAMINE [Concomitant]
     Indication: MIGRAINE
  8. PARACETAMOL [Concomitant]
     Indication: PREMEDICATION
  9. PARACETAMOL [Concomitant]

REACTIONS (9)
  - Delirium [Unknown]
  - Dizziness [Unknown]
  - Burning sensation [Unknown]
  - Paraesthesia [Unknown]
  - Pyrexia [Not Recovered/Not Resolved]
  - Pain [Not Recovered/Not Resolved]
  - Chills [Recovered/Resolved]
  - Headache [Unknown]
  - Injection site haematoma [Not Recovered/Not Resolved]
